FAERS Safety Report 5508514-8 (Version None)
Quarter: 2007Q4

REPORT INFORMATION
  Report Type: 
  Country: None (occurrence: None)
  Receive Date: 20071105
  Receipt Date: 20071030
  Transmission Date: 20080405
  Serious: Yes (Death)
  Sender: FDA-Public Use
  Company Number: 2007SP017312

PATIENT
  Age: 64 Year
  Sex: Female

DRUGS (6)
  1. TEMODAR [Suspect]
     Indication: GLIOBLASTOMA
     Dosage: 100 MG; QD; PO
     Route: 048
     Dates: start: 20070620
  2. TEMODAR [Suspect]
     Indication: GLIOBLASTOMA
     Dosage: 100 MG; QD; PO
     Route: 048
     Dates: start: 20070626
  3. DECADRON [Concomitant]
  4. DILANTIN [Concomitant]
  5. LORTAB [Concomitant]
  6. ZOFRAN [Concomitant]

REACTIONS (2)
  - BRAIN NEOPLASM MALIGNANT [None]
  - MALIGNANT NEOPLASM PROGRESSION [None]
